FAERS Safety Report 10164610 (Version 2)
Quarter: 2014Q2

REPORT INFORMATION
  Report Type: Spontaneous
  Country: US (occurrence: US)
  Receive Date: 20140510
  Receipt Date: 20140510
  Transmission Date: 20141212
  Serious: No
  Sender: FDA-Public Use
  Company Number: US-BRISTOL-MYERS SQUIBB COMPANY-20114823

PATIENT
  Sex: Female

DRUGS (1)
  1. BYDUREON [Suspect]
     Route: 058
     Dates: start: 20140128

REACTIONS (1)
  - Drug dose omission [Unknown]
